FAERS Safety Report 9492297 (Version 1)
Quarter: 2013Q3

REPORT INFORMATION
  Report Type: Spontaneous
  Country: AR (occurrence: AR)
  Receive Date: 20130830
  Receipt Date: 20130830
  Transmission Date: 20140515
  Serious: Yes (Death, Hospitalization)
  Sender: FDA-Public Use
  Company Number: AR-AMGEN-ARGSP2013061200

PATIENT
  Age: 77 Year
  Sex: Female

DRUGS (1)
  1. ENBREL [Suspect]
     Indication: RHEUMATOID ARTHRITIS
     Dosage: UNK
     Route: 065
     Dates: start: 20061017

REACTIONS (6)
  - Aneurysm [Fatal]
  - Gastrointestinal necrosis [Fatal]
  - Ileus paralytic [Fatal]
  - Gastrointestinal motility disorder [Unknown]
  - Functional gastrointestinal disorder [Unknown]
  - Diarrhoea [Unknown]
